FAERS Safety Report 5030677-1 (Version None)
Quarter: 2006Q2

REPORT INFORMATION
  Report Type: 
  Country: None (occurrence: None)
  Receive Date: 20060615
  Receipt Date: 20060602
  Transmission Date: 20061013
  Serious: Yes (Hospitalization)
  Sender: FDA-Public Use
  Company Number: 2006074642

PATIENT
  Age: 59 Year
  Sex: Male
  Weight: 120 kg

DRUGS (6)
  1. PREDNISONE TAB [Suspect]
     Indication: ILL-DEFINED DISORDER
     Dosage: SUBCUTANEOUS
     Route: 058
  2. DOXORUBICIN HCL [Suspect]
     Indication: ILL-DEFINED DISORDER
  3. CYCLOPHOSPHAMIDE [Suspect]
     Indication: ILL-DEFINED DISORDER
  4. VINCRISTINE [Suspect]
     Indication: ILL-DEFINED DISORDER
  5. OLMESARTAN (OLMESARTAN) [Suspect]
     Indication: ILL-DEFINED DISORDER
  6. NICARDIPINE (NICARDIPINE) [Suspect]
     Indication: ILL-DEFINED DISORDER

REACTIONS (6)
  - ACUTE CORONARY SYNDROME [None]
  - ANAEMIA [None]
  - CHEST PAIN [None]
  - CORONARY ARTERY STENOSIS [None]
  - ELECTROCARDIOGRAM ST SEGMENT DEPRESSION [None]
  - VENTRICULAR HYPOKINESIA [None]
